FAERS Safety Report 8729637 (Version 2)
Quarter: 2015Q2

REPORT INFORMATION
  Report Type: Report from Study
  Country: US (occurrence: US)
  Receive Date: 20120817
  Receipt Date: 20150401
  Transmission Date: 20150821
  Serious: Yes (Hospitalization)
  Sender: FDA-Public Use
  Company Number: US-ROCHE-1100842

PATIENT
  Sex: Male

DRUGS (7)
  1. NITROGLYCERINE [Concomitant]
     Active Substance: NITROGLYCERIN
  2. ACTIVASE [Suspect]
     Active Substance: ALTEPLASE
     Indication: ACUTE MYOCARDIAL INFARCTION
     Route: 065
  3. ASPIRIN. [Concomitant]
     Active Substance: ASPIRIN
     Route: 065
  4. HEPARIN [Concomitant]
     Active Substance: HEPARIN SODIUM
     Route: 065
  5. LIDOCAINE. [Concomitant]
     Active Substance: LIDOCAINE
  6. PROCARDIA (UNITED STATES) [Concomitant]
     Route: 065
  7. TPA [Concomitant]
     Active Substance: ALTEPLASE

REACTIONS (1)
  - Chest pain [Unknown]
